FAERS Safety Report 11929965 (Version 1)
Quarter: 2016Q1

REPORT INFORMATION
  Report Type: Spontaneous
  Country: US (occurrence: None)
  Receive Date: 20160119
  Receipt Date: 20160119
  Transmission Date: 20160526
  Serious: Yes (Other)
  Sender: FDA-Public Use
  Company Number: None

PATIENT
  Age: 68 Year
  Sex: Female
  Weight: 74 kg

DRUGS (3)
  1. KCENTRA [Suspect]
     Active Substance: COAGULATION FACTOR IX HUMAN\COAGULATION FACTOR VII HUMAN\COAGULATION FACTOR X HUMAN\PROTEIN C\PROTEIN S HUMAN\PROTHROMBIN
     Indication: PROCOAGULANT THERAPY
     Dosage: 2387 UNITS/92 ML ONCE INTRAVENOUS
     Route: 042
     Dates: start: 20160112, end: 20160112
  2. VITAMIN K [Concomitant]
     Active Substance: PHYTONADIONE
  3. KCENTRA [Suspect]
     Active Substance: COAGULATION FACTOR IX HUMAN\COAGULATION FACTOR VII HUMAN\COAGULATION FACTOR X HUMAN\PROTEIN C\PROTEIN S HUMAN\PROTHROMBIN
     Indication: GASTROINTESTINAL HAEMORRHAGE
     Dosage: 2387 UNITS/92 ML ONCE INTRAVENOUS
     Route: 042
     Dates: start: 20160112, end: 20160112

REACTIONS (4)
  - Infusion site thrombosis [None]
  - Infusion site pain [None]
  - Poor venous access [None]
  - Infusion site extravasation [None]

NARRATIVE: CASE EVENT DATE: 20160112
